FAERS Safety Report 15026747 (Version 2)
Quarter: 2018Q3

REPORT INFORMATION
  Report Type: Spontaneous
  Country: JP (occurrence: JP)
  Receive Date: 20180618
  Receipt Date: 20180801
  Transmission Date: 20181010
  Serious: Yes (Death, Other)
  Sender: FDA-Public Use
  Company Number: JP-BRISTOL-MYERS SQUIBB COMPANY-BMS-2018-024439

PATIENT
  Age: 80 Year
  Sex: Male

DRUGS (1)
  1. NIVOLUMAB [Suspect]
     Active Substance: NIVOLUMAB
     Indication: NON-SMALL CELL LUNG CANCER RECURRENT
     Dosage: UNK
     Route: 041
     Dates: start: 20171013, end: 20180109

REACTIONS (4)
  - Interstitial lung disease [Fatal]
  - Diarrhoea [Recovered/Resolved]
  - Cerebral infarction [Unknown]
  - Colitis [Recovered/Resolved]

NARRATIVE: CASE EVENT DATE: 20180109
